FAERS Safety Report 7700684-6 (Version None)
Quarter: 2011Q3

REPORT INFORMATION
  Report Type: 
  Country: None (occurrence: None)
  Receive Date: 20110822
  Receipt Date: 20110812
  Transmission Date: 20111222
  Serious: Yes (Hospitalization)
  Sender: FDA-Public Use
  Company Number: HR-GENZYME-CERZ-1002110

PATIENT

DRUGS (1)
  1. CEREZYME [Suspect]
     Indication: GAUCHER'S DISEASE
     Dosage: 60 U/KG, Q2W
     Route: 042
     Dates: start: 20020101

REACTIONS (10)
  - BONE PAIN [None]
  - BURNING SENSATION [None]
  - OEDEMA MUCOSAL [None]
  - ASTHENIA [None]
  - CONFUSIONAL STATE [None]
  - HYPOAESTHESIA [None]
  - EYE PAIN [None]
  - LOSS OF CONSCIOUSNESS [None]
  - CHILLS [None]
  - HEADACHE [None]
